FAERS Safety Report 9687238 (Version 2)
Quarter: 2013Q4

REPORT INFORMATION
  Report Type: Spontaneous
  Country: FR (occurrence: FR)
  Receive Date: 20131113
  Receipt Date: 20131204
  Transmission Date: 20140711
  Serious: Yes (Other)
  Sender: FDA-Public Use
  Company Number: FR-JNJFOC-20131100212

PATIENT
  Age: 41 Year
  Sex: Female

DRUGS (8)
  1. ACTIFED JOUR ET NUIT [Suspect]
     Indication: PRODUCT USED FOR UNKNOWN INDICATION
     Dosage: ESTIMATED FREQUENCY: 2 TIMES A YEAR
     Route: 048
  2. RHINOFLUIMUCIL [Suspect]
     Indication: NASOPHARYNGITIS
     Dosage: ESTIMATED FREQUENCY: 2 TIMES A YEAR
     Route: 045
  3. HUMEX [Suspect]
     Indication: NASOPHARYNGITIS
     Dosage: ESTIMATED FREQUENCY: 2 TIMES A YEAR
     Route: 065
  4. SUP-RHINITE [Suspect]
     Indication: PRODUCT USED FOR UNKNOWN INDICATION
     Dosage: OFTEN, AVERAGE OF 3 TIMES A YEAR OVER SEVERAL YEARS BEFORE 2001
     Route: 065
  5. CODOLIPRANE [Suspect]
     Indication: PRODUCT USED FOR UNKNOWN INDICATION
     Route: 065
  6. PIZOTIFEN MALEATE [Suspect]
     Indication: MIGRAINE
     Route: 065
     Dates: end: 2005
  7. ORAL CONTRACEPTIVES [Concomitant]
     Indication: PRODUCT USED FOR UNKNOWN INDICATION
     Dosage: DURING 4 MONTHS AFTER OCTOBER 2010
     Route: 048
  8. INSULIN [Concomitant]
     Indication: GESTATIONAL DIABETES
     Dosage: 5 INJ/DAY DURING PREGNANCY, 2 INJ/DAY AT THIS TIME
     Route: 065
     Dates: start: 2009

REACTIONS (1)
  - Pulmonary arterial hypertension [Not Recovered/Not Resolved]
